FAERS Safety Report 25018758 (Version 1)
Quarter: 2025Q1

REPORT INFORMATION
  Report Type: Spontaneous
  Country: US (occurrence: US)
  Receive Date: 20250227
  Receipt Date: 20250227
  Transmission Date: 20250409
  Serious: No
  Sender: AVADEL CNS PHARMACEUTICALS, LLC
  Company Number: US-AVADEL CNS PHARMACEUTICALS, LLC-2024AVA02403

PATIENT
  Sex: Male
  Weight: 70.295 kg

DRUGS (20)
  1. LUMRYZ [Suspect]
     Active Substance: SODIUM OXYBATE
     Indication: Narcolepsy
     Dosage: 7.5 G, ONCE NIGHTLY AT BEDTIME
     Dates: start: 20241129, end: 20241219
  2. LUMRYZ [Suspect]
     Active Substance: SODIUM OXYBATE
     Indication: Narcolepsy
     Dosage: 9 G, ONCE NIGHTLY AT BEDTIME
     Dates: start: 20241220, end: 202412
  3. LUMRYZ [Suspect]
     Active Substance: SODIUM OXYBATE
     Dosage: 9 G, ONCE NIGHTLY AT BEDTIME
     Dates: start: 202412, end: 202412
  4. PROBIOTICS NOS [Concomitant]
     Active Substance: PROBIOTICS NOS
  5. DIETARY SUPPLEMENT [Concomitant]
     Active Substance: DIETARY SUPPLEMENT
  6. BONE UP [Concomitant]
  7. LION^S MANE [HERICIUM ERINACEUS MYCELIUM] [Concomitant]
  8. CANNABIS SATIVA SUBSP. INDICA TOP [Concomitant]
     Active Substance: CANNABIS SATIVA SUBSP. INDICA TOP
  9. B COMPLEX WITH B-12 [Concomitant]
  10. NEURIVA ORIGINAL [Concomitant]
  11. KELP [ASCOPHYLLUM NODOSUM] [Concomitant]
  12. IBUPROFEN [Concomitant]
     Active Substance: IBUPROFEN
  13. TYLENOL [Concomitant]
     Active Substance: ACETAMINOPHEN
  14. ZANAFLEX [Concomitant]
     Active Substance: TIZANIDINE HYDROCHLORIDE
  15. TIMOLOL MALEATE [Concomitant]
     Active Substance: TIMOLOL MALEATE
  16. TADALAFIL [Concomitant]
     Active Substance: TADALAFIL
     Dosage: 5 MG AT NIGHT
  17. SF 5000 PLUS [Concomitant]
     Active Substance: SODIUM FLUORIDE
  18. XALATAN [Concomitant]
     Active Substance: LATANOPROST
  19. DORZOLAMIDE HYDROCHLORIDE [Concomitant]
     Active Substance: DORZOLAMIDE HYDROCHLORIDE
  20. ADDERALL [Concomitant]
     Active Substance: AMPHETAMINE ASPARTATE\AMPHETAMINE SULFATE\DEXTROAMPHETAMINE SACCHARATE\DEXTROAMPHETAMINE SULFATE

REACTIONS (26)
  - Throat tightness [Unknown]
  - Middle insomnia [Not Recovered/Not Resolved]
  - Sedation [Recovered/Resolved]
  - Movement disorder [Recovered/Resolved]
  - Bradykinesia [Not Recovered/Not Resolved]
  - Cognitive disorder [Recovered/Resolved]
  - Abdominal pain [Not Recovered/Not Resolved]
  - Dry throat [Not Recovered/Not Resolved]
  - Throat irritation [Unknown]
  - Pharyngeal swelling [Not Recovered/Not Resolved]
  - Dyspnoea [Recovered/Resolved]
  - Oropharyngeal pain [Unknown]
  - Micturition urgency [Recovered/Resolved]
  - Insomnia [Recovered/Resolved]
  - Dysphonia [Not Recovered/Not Resolved]
  - Cough [Not Recovered/Not Resolved]
  - Peripheral coldness [Recovered/Resolved]
  - Rash [Recovered/Resolved]
  - Weight fluctuation [Unknown]
  - Nocturia [Unknown]
  - Somnolence [Recovered/Resolved]
  - Nausea [Recovered/Resolved]
  - Dizziness [Unknown]
  - Abdominal pain upper [Recovered/Resolved]
  - Paraesthesia [Recovered/Resolved]
  - Pain [Unknown]

NARRATIVE: CASE EVENT DATE: 20240101
